FAERS Safety Report 18333922 (Version 1)
Quarter: 2020Q3

REPORT INFORMATION
  Report Type: Spontaneous
  Country: US (occurrence: US)
  Receive Date: 20200930
  Receipt Date: 20200930
  Transmission Date: 20201103
  Serious: Yes (Life-Threatening, Hospitalization)
  Sender: FDA-Public Use
  Company Number: None

PATIENT
  Age: 56 Year
  Sex: Female
  Weight: 83 kg

DRUGS (1)
  1. RISPERDAL [Suspect]
     Active Substance: RISPERIDONE
     Route: 048

REACTIONS (9)
  - Pyrexia [None]
  - Asthenia [None]
  - Blood glucose abnormal [None]
  - Muscle rigidity [None]
  - Metabolic syndrome [None]
  - Tremor [None]
  - Hypoxia [None]
  - Heart rate increased [None]
  - Confusional state [None]

NARRATIVE: CASE EVENT DATE: 20200920
